FAERS Safety Report 8052679-3 (Version None)
Quarter: 2012Q1

REPORT INFORMATION
  Report Type: 
  Country: None (occurrence: None)
  Receive Date: 20120118
  Receipt Date: 20120118
  Transmission Date: 20120608
  Serious: Yes (Disabling, Other)
  Sender: FDA-Public Use
  Company Number: None

PATIENT
  Sex: Female
  Weight: 70.306 kg

DRUGS (2)
  1. PEGASYS [Suspect]
     Indication: HEPATITIS C
     Dosage: 180MCG
     Route: 058
     Dates: start: 20111007, end: 20120112
  2. VICTRELIS [Concomitant]
     Indication: HEPATITIS C
     Dosage: 800MG
     Route: 048
     Dates: start: 20111007, end: 20120112

REACTIONS (1)
  - HAEMOGLOBIN DECREASED [None]
